FAERS Safety Report 12720281 (Version 1)
Quarter: 2016Q3

REPORT INFORMATION
  Report Type: Spontaneous
  Country: FR (occurrence: FR)
  Receive Date: 20160907
  Receipt Date: 20160907
  Transmission Date: 20161109
  Serious: Yes (Life-Threatening, Other)
  Sender: FDA-Public Use
  Company Number: FR-AUROBINDO-AUR-APL-2016-10957

PATIENT
  Age: 64 Year
  Sex: Male

DRUGS (3)
  1. MYCOPHENOLATE [Suspect]
     Active Substance: MYCOPHENOLIC ACID
     Indication: IMMUNOSUPPRESSION
     Dosage: 750 MG, TWO TIMES A DAY
     Route: 065
  2. PREDNISONE. [Suspect]
     Active Substance: PREDNISONE
     Indication: IMMUNOSUPPRESSION
     Dosage: 10 MG, UNK
     Route: 065
  3. TACROLIMUS. [Suspect]
     Active Substance: TACROLIMUS
     Indication: IMMUNOSUPPRESSION
     Dosage: 7 MG, TWO TIMES A DAY
     Route: 065

REACTIONS (5)
  - Neutropenia [Unknown]
  - Leukopenia [Unknown]
  - Overdose [Unknown]
  - Acute kidney injury [Unknown]
  - Cryptosporidiosis infection [Recovered/Resolved]

NARRATIVE: CASE EVENT DATE: 20140926
